FAERS Safety Report 8602521-4 (Version None)
Quarter: 2012Q3

REPORT INFORMATION
  Report Type: 
  Country: None (occurrence: None)
  Receive Date: 20120817
  Receipt Date: 20120814
  Transmission Date: 20120928
  Serious: Yes (Death)
  Sender: FDA-Public Use
  Company Number: NZ-B.I. PHARMACEUTICALS,INC./RIDGEFIELD-2012-AU-01422AU

PATIENT
  Age: 84 Year
  Sex: Female

DRUGS (6)
  1. OMEPRAZOLE [Concomitant]
     Indication: GASTROOESOPHAGEAL REFLUX DISEASE
     Dosage: 20 MG
     Route: 048
     Dates: start: 20120210, end: 20120214
  2. PRADAXA [Suspect]
     Indication: ATRIAL FLUTTER
  3. METOPROLOL TARTRATE [Concomitant]
     Indication: ATRIAL FLUTTER
  4. PRADAXA [Suspect]
     Indication: ATRIAL FIBRILLATION
     Dosage: 220 MG
     Route: 048
     Dates: start: 20111027, end: 20120214
  5. METOPROLOL TARTRATE [Concomitant]
     Indication: ATRIAL FIBRILLATION
     Dosage: 47.5 MG
     Route: 048
     Dates: start: 20110725, end: 20120214
  6. CILAZAPRIL [Concomitant]
     Indication: ESSENTIAL HYPERTENSION
     Dosage: 5 MG
     Route: 048
     Dates: start: 20120210, end: 20120214

REACTIONS (2)
  - FALL [None]
  - HAEMORRHAGE INTRACRANIAL [None]
